FAERS Safety Report 6236464-0 (Version None)
Quarter: 2009Q2

REPORT INFORMATION
  Report Type: 
  Country: None (occurrence: None)
  Receive Date: 20090619
  Receipt Date: 20090618
  Transmission Date: 20091009
  Serious: Yes (Death)
  Sender: FDA-Public Use
  Company Number: US-ASTRAZENECA-2009UW15817

PATIENT
  Age: 41 Year
  Sex: Male

DRUGS (6)
  1. SEROQUEL [Suspect]
     Route: 048
  2. PROZAC [Suspect]
  3. LAMICTAL [Suspect]
  4. COCAINE [Suspect]
  5. BUPRENORPHINE HCL [Suspect]
  6. AFRIN [Concomitant]

REACTIONS (1)
  - ACCIDENTAL DEATH [None]
